APPROVED DRUG PRODUCT: AMINOPHYLLINE
Active Ingredient: AMINOPHYLLINE
Strength: 25MG/ML
Dosage Form/Route: INJECTABLE;INJECTION
Application: A087242 | Product #001
Applicant: HOSPIRA INC
Approved: Oct 26, 1983 | RLD: Yes | RS: Yes | Type: RX